FAERS Safety Report 8300380-0 (Version None)
Quarter: 2012Q2

REPORT INFORMATION
  Report Type: 
  Country: None (occurrence: None)
  Receive Date: 20120417
  Receipt Date: 20120403
  Transmission Date: 20120825
  Serious: Yes (Other)
  Sender: FDA-Public Use
  Company Number: 217140

PATIENT
  Sex: Female
  Weight: 60.8 kg

DRUGS (6)
  1. ASPIRIN (ACETYLSALICYLIC ACID) (81 MG) [Concomitant]
  2. LISINOPRIL [Concomitant]
  3. DAIVOBET GEL (DAIVOBET /01643401/) (GEL) [Suspect]
     Indication: PSORIASIS
     Dosage: (EVERY DAY), SUBCUTANEOUS
     Route: 058
  4. SYNTHROID (LEVOTHYROXINE SODIUM) (50 MCG) [Concomitant]
  5. T-CELL SHAMPOO (MEDICATED SHAMPOOS) [Concomitant]
  6. HUMALOG INSULIN U 110 (INSULIN) [Concomitant]

REACTIONS (2)
  - CONDITION AGGRAVATED [None]
  - CATARACT [None]
